FAERS Safety Report 16084134 (Version 1)
Quarter: 2019Q1

REPORT INFORMATION
  Report Type: Spontaneous
  Country: US (occurrence: US)
  Receive Date: 20190318
  Receipt Date: 20190318
  Transmission Date: 20190418
  Serious: No
  Sender: FDA-Public Use
  Company Number: US-PFIZER INC-2016467515

PATIENT
  Age: 74 Year

DRUGS (1)
  1. LYRICA [Suspect]
     Active Substance: PREGABALIN
     Indication: RHEUMATOID ARTHRITIS
     Dosage: 50 MG, TWICE A DAY
     Route: 048

REACTIONS (2)
  - Product use in unapproved indication [Unknown]
  - Drug hypersensitivity [Unknown]
